FAERS Safety Report 7518292-9 (Version None)
Quarter: 2011Q2

REPORT INFORMATION
  Report Type: 
  Country: None (occurrence: None)
  Receive Date: 20110602
  Receipt Date: 20110517
  Transmission Date: 20111010
  Serious: Yes (Other)
  Sender: FDA-Public Use
  Company Number: US-BAYER-2011-026061

PATIENT
  Age: 39 Year
  Sex: Female
  Weight: 63.492 kg

DRUGS (5)
  1. MINOCYCLINE HCL [Concomitant]
     Route: 048
  2. MOTRIN [Concomitant]
     Dosage: 800 MG, TID
     Dates: start: 20090105
  3. YAZ [Suspect]
     Indication: PRODUCT USED FOR UNKNOWN INDICATION
     Dosage: UNK UNK, QD
     Route: 048
     Dates: start: 20080912, end: 20090105
  4. YASMIN [Suspect]
     Indication: PRODUCT USED FOR UNKNOWN INDICATION
     Route: 048
  5. PENTASA [Concomitant]
     Indication: COLITIS ULCERATIVE
     Dosage: 250 MG, QID
     Route: 048

REACTIONS (3)
  - DEEP VEIN THROMBOSIS [None]
  - INJURY [None]
  - EMOTIONAL DISTRESS [None]
